FAERS Safety Report 16789675 (Version 1)
Quarter: 2019Q3

REPORT INFORMATION
  Report Type: Spontaneous
  Country: SE (occurrence: SE)
  Receive Date: 20190910
  Receipt Date: 20190910
  Transmission Date: 20191005
  Serious: Yes (Hospitalization)
  Sender: FDA-Public Use
  Company Number: SE-TEVA-2019-SE-1103881

PATIENT
  Age: 24 Year
  Sex: Female

DRUGS (3)
  1. LAMOTRIGINE. [Suspect]
     Active Substance: LAMOTRIGINE
     Dosage: 16 ST
     Route: 048
     Dates: start: 20190408, end: 20190408
  2. ALVEDON [Suspect]
     Active Substance: ACETAMINOPHEN
     Dosage: 16 ST
     Route: 048
     Dates: start: 20190408, end: 20190408
  3. LERGIGAN (PROMETHAZINE HYDROCHLORIDE) [Suspect]
     Active Substance: PROMETHAZINE HYDROCHLORIDE
     Dosage: 16 PIECES
     Route: 048
     Dates: start: 20190408, end: 20190408

REACTIONS (2)
  - Intentional overdose [Unknown]
  - Intentional self-injury [Unknown]

NARRATIVE: CASE EVENT DATE: 20190409
